FAERS Safety Report 5363759-5 (Version None)
Quarter: 2007Q2

REPORT INFORMATION
  Report Type: 
  Country: None (occurrence: None)
  Receive Date: 20070530
  Receipt Date: 20070106
  Transmission Date: 20071010
  Serious: No
  Sender: FDA-Public Use
  Company Number: 2007PV027904

PATIENT
  Age: 52 Year
  Sex: Female
  Weight: 54.4316 kg

DRUGS (5)
  1. BYETTA [Suspect]
     Indication: DIABETES MELLITUS
     Dosage: 5 MCG;QD;SC ; 5 MCG;BID;SC
     Route: 058
     Dates: start: 20061221, end: 20061201
  2. BYETTA [Suspect]
     Indication: DIABETES MELLITUS
     Dosage: 5 MCG;QD;SC ; 5 MCG;BID;SC
     Route: 058
     Dates: start: 20061201
  3. LANTUS [Concomitant]
  4. HUMALOG [Concomitant]
  5. AMBIEN [Concomitant]

REACTIONS (4)
  - DIARRHOEA [None]
  - DYSPEPSIA [None]
  - INSOMNIA [None]
  - NAUSEA [None]
